FAERS Safety Report 11371344 (Version 2)
Quarter: 2015Q3

REPORT INFORMATION
  Report Type: Report from Study
  Country: RU (occurrence: RU)
  Receive Date: 20150812
  Receipt Date: 20150923
  Transmission Date: 20151125
  Serious: Yes (Hospitalization, Other)
  Sender: FDA-Public Use
  Company Number: RU-GILEAD-2015-0163036

PATIENT
  Age: 47 Year
  Sex: Male
  Weight: 96 kg

DRUGS (7)
  1. BENDAMUSTINE [Suspect]
     Active Substance: BENDAMUSTINE
     Indication: NON-HODGKIN^S LYMPHOMA UNSPECIFIED HISTOLOGY INDOLENT
     Dosage: 198 MG, Q1MONTH
     Route: 065
     Dates: start: 20140409, end: 20140909
  2. BENDAMUSTINE [Suspect]
     Active Substance: BENDAMUSTINE
     Dosage: 132 MG, Q1MONTH
     Route: 065
     Dates: start: 20140409
  3. DICLOPHENAC [Concomitant]
     Active Substance: DICLOFENAC SODIUM
     Indication: ANALGESIC THERAPY
     Dosage: UNK
     Dates: start: 20150709, end: 20150723
  4. IDELALISIB [Suspect]
     Active Substance: IDELALISIB
     Indication: NON-HODGKIN^S LYMPHOMA UNSPECIFIED HISTOLOGY INDOLENT
     Dosage: 150 MG, BID
     Route: 065
     Dates: start: 20140409, end: 20150710
  5. BENDAMUSTINE [Suspect]
     Active Substance: BENDAMUSTINE
     Dosage: 88 MG, Q1MONTH
     Route: 065
     Dates: start: 20140409
  6. RITUXIMAB [Suspect]
     Active Substance: RITUXIMAB
     Indication: NON-HODGKIN^S LYMPHOMA UNSPECIFIED HISTOLOGY INDOLENT
     Dosage: 825 MG, Q1MONTH
     Route: 065
     Dates: start: 20140409, end: 20140908
  7. CEFTRIAXON [Concomitant]
     Active Substance: CEFTRIAXONE
     Indication: ANTIBIOTIC THERAPY
     Dosage: UNK
     Dates: start: 20150709, end: 20150717

REACTIONS (1)
  - Haematoma infection [Recovered/Resolved with Sequelae]

NARRATIVE: CASE EVENT DATE: 20150709
